FAERS Safety Report 15622216 (Version 2)
Quarter: 2018Q4

REPORT INFORMATION
  Report Type: Spontaneous
  Country: US (occurrence: US)
  Receive Date: 20181115
  Receipt Date: 20181228
  Transmission Date: 20190205
  Serious: Yes (Other)
  Sender: FDA-Public Use
  Company Number: US-THERATECHNOLOGIES INC.-2018-THE-IBA-000033

PATIENT
  Sex: Male

DRUGS (2)
  1. TROGARZO [Suspect]
     Active Substance: IBALIZUMAB-UIYK
     Indication: PRODUCT USED FOR UNKNOWN INDICATION
     Dosage: UNK
     Route: 042
  2. TROGARZO [Suspect]
     Active Substance: IBALIZUMAB-UIYK
     Dosage: UNK
     Route: 042
     Dates: end: 201809

REACTIONS (2)
  - Nodule [Unknown]
  - Lymphoma [Not Recovered/Not Resolved]

NARRATIVE: CASE EVENT DATE: 2018
